FAERS Safety Report 5672698-1 (Version None)
Quarter: 2008Q1

REPORT INFORMATION
  Report Type: 
  Country: None (occurrence: None)
  Receive Date: 20080319
  Receipt Date: 20070713
  Transmission Date: 20080703
  Serious: No
  Sender: FDA-Public Use
  Company Number: US-KINGPHARMUSA00001-K200700891

PATIENT

DRUGS (8)
  1. ALTACE [Suspect]
     Indication: TRANSIENT ISCHAEMIC ATTACK
     Dosage: 5 MG, QD
     Route: 048
     Dates: start: 20040101, end: 20070701
  2. ALTACE [Suspect]
     Indication: CEREBROVASCULAR ACCIDENT
  3. LIPITOR [Concomitant]
     Indication: BLOOD CHOLESTEROL
     Dosage: 10 MG, QD
  4. SYNTHROID [Concomitant]
     Indication: THYROID DISORDER
     Dosage: 100 MG, QD
  5. GLUCOPHAGE [Concomitant]
     Indication: DIABETES MELLITUS
  6. AGGRENOX [Concomitant]
     Indication: ANTICOAGULANT THERAPY
  7. NOVOLOG PEN [Concomitant]
     Indication: DIABETES MELLITUS
  8. LANTUS [Concomitant]
     Indication: DIABETES MELLITUS
     Dosage: UNK, QHS

REACTIONS (2)
  - COUGH [None]
  - DYSPHONIA [None]
